FAERS Safety Report 6871086-X (Version None)
Quarter: 2010Q3

REPORT INFORMATION
  Report Type: 
  Country: None (occurrence: None)
  Receive Date: 20100723
  Receipt Date: 20100708
  Transmission Date: 20110219
  Serious: Yes (Hospitalization, Other)
  Sender: FDA-Public Use
  Company Number: US-BAYER-200936840NA

PATIENT
  Age: 38 Year
  Sex: Female
  Weight: 61 kg

DRUGS (5)
  1. YAZ [Suspect]
     Indication: DYSMENORRHOEA
     Dates: start: 20080501
  2. YASMIN [Suspect]
     Indication: PRODUCT USED FOR UNKNOWN INDICATION
     Route: 048
     Dates: start: 20080430, end: 20080607
  3. TORADOL [Concomitant]
     Indication: ENDOMETRIOSIS
     Dosage: TOTAL DAILY DOSE: 30 MG  UNIT DOSE: 10 MG
     Route: 048
     Dates: start: 20070101, end: 20080324
  4. DICYCLOMINE [Concomitant]
     Dosage: ONE TO TWO CAPSULES WERE USED THREE TIMES A DAY
     Route: 048
     Dates: start: 20080321
  5. GUAIFEN/CODEIN [Concomitant]
     Dosage: 100-10 MG/5 ML. ONE TO TWO TABLESPOONS WERE TAKEN EVERY FOUR HOURS
     Route: 048
     Dates: start: 20071024

REACTIONS (9)
  - AMNESIA [None]
  - ANXIETY [None]
  - BRAIN OEDEMA [None]
  - CEREBROVASCULAR ACCIDENT [None]
  - COGNITIVE DISORDER [None]
  - HEADACHE [None]
  - HEMIPARESIS [None]
  - MENTAL IMPAIRMENT [None]
  - PAIN [None]
